FAERS Safety Report 7498529-5 (Version None)
Quarter: 2011Q2

REPORT INFORMATION
  Report Type: 
  Country: None (occurrence: None)
  Receive Date: 20110524
  Receipt Date: 20110502
  Transmission Date: 20111010
  Serious: Yes (Hospitalization)
  Sender: FDA-Public Use
  Company Number: US-BAYER-201039127NA

PATIENT
  Age: 40 Year
  Sex: Female
  Weight: 160.54 kg

DRUGS (21)
  1. ANTIHYPERTENSIVES [Concomitant]
     Dosage: UNK
  2. FUROSEMIDE [Concomitant]
     Dosage: UNK
     Dates: start: 20080101
  3. GLIPIZIDE [Concomitant]
     Dosage: 2.5 MG, BID
  4. FLUCONAZOLE [Concomitant]
     Dosage: 100 MG, QD
  5. YAZ [Suspect]
     Indication: PRODUCT USED FOR UNKNOWN INDICATION
     Route: 048
  6. MULTI-VITAMIN [Concomitant]
     Dosage: UNK UNK, QD
  7. NOVOLOG [Concomitant]
     Dosage: 30 U, BID
  8. LORTAB [Concomitant]
     Indication: PAIN
  9. PHENERGAN [Concomitant]
     Indication: NAUSEA
     Dosage: 25 MG, PRN
  10. LISINOPRIL [Concomitant]
     Dosage: UNK
     Dates: start: 20060101
  11. MOTRIN [Concomitant]
     Dosage: UNK
     Dates: start: 20070101, end: 20080101
  12. ASPIRIN [Concomitant]
  13. ACETAMINOPHEN [Concomitant]
  14. METFORMIN [Concomitant]
     Indication: DIABETES MELLITUS
     Dosage: UNK
     Dates: start: 20080901
  15. BUMEX [Concomitant]
  16. IBUPROFEN (ADVIL) [Concomitant]
     Dosage: UNK UNK, PRN
  17. LASIX [Concomitant]
  18. REGLAN [Concomitant]
     Dosage: 5 MG, TID
  19. BUMAN [Concomitant]
  20. GLUCOPHAGE [Concomitant]
  21. DILAUDID [Concomitant]

REACTIONS (6)
  - PAIN [None]
  - TYPE 2 DIABETES MELLITUS [None]
  - CHOLECYSTITIS ACUTE [None]
  - CHOLECYSTITIS CHRONIC [None]
  - GALLBLADDER NON-FUNCTIONING [None]
  - CHOLELITHIASIS [None]
